FAERS Safety Report 5871563-4 (Version None)
Quarter: 2008Q3

REPORT INFORMATION
  Report Type: 
  Country: None (occurrence: None)
  Receive Date: 20080905
  Receipt Date: 20080506
  Transmission Date: 20090109
  Serious: No
  Sender: FDA-Public Use
  Company Number: A0726572A

PATIENT
  Age: 68 Year
  Sex: Female

DRUGS (5)
  1. REQUIP [Suspect]
     Dosage: .05MG PER DAY
     Route: 048
     Dates: start: 20080428
  2. PAIN MEDICATIONS [Concomitant]
  3. BLOOD PRESSURE MEDICATION [Concomitant]
  4. ACID REFLUX MED. [Concomitant]
  5. ARTHRITIS MEDICATION [Concomitant]
     Indication: OSTEOARTHRITIS

REACTIONS (1)
  - MUSCLE SPASMS [None]
